FAERS Safety Report 19708402 (Version 10)
Quarter: 2022Q1

REPORT INFORMATION
  Report Type: Spontaneous
  Country: GB (occurrence: GB)
  Receive Date: 20210816
  Receipt Date: 20220103
  Transmission Date: 20220423
  Serious: Yes (Hospitalization, Other)
  Sender: FDA-Public Use
  Company Number: GB-JNJFOC-20201034744

PATIENT
  Age: 73 Year
  Sex: Male

DRUGS (17)
  1. ABIRATERONE ACETATE [Suspect]
     Active Substance: ABIRATERONE ACETATE
     Indication: Prostate cancer
     Dosage: 1000 MG, QD
     Route: 048
     Dates: start: 20200814, end: 20210713
  2. ABIRATERONE ACETATE [Suspect]
     Active Substance: ABIRATERONE ACETATE
     Dosage: 1000 MG, QD
     Route: 048
     Dates: start: 20201209
  3. ABIRATERONE ACETATE [Suspect]
     Active Substance: ABIRATERONE ACETATE
     Dosage: UNK
     Route: 048
     Dates: start: 20201209, end: 20211005
  4. ABIRATERONE ACETATE [Suspect]
     Active Substance: ABIRATERONE ACETATE
     Dosage: 1000 MG, QD
     Route: 048
     Dates: start: 20210928
  5. ABIRATERONE ACETATE [Suspect]
     Active Substance: ABIRATERONE ACETATE
     Dosage: UNK
     Route: 048
     Dates: start: 20211012
  6. PREDNISOLONE [Suspect]
     Active Substance: PREDNISOLONE
     Indication: Prostate cancer
     Dosage: 10 MG, QD
     Route: 048
     Dates: start: 20200814, end: 20210713
  7. PREDNISOLONE [Suspect]
     Active Substance: PREDNISOLONE
     Dosage: 5 MG/KG, BID
     Route: 048
     Dates: start: 20201209
  8. BENDROFLUMETHIAZIDE [Concomitant]
     Active Substance: BENDROFLUMETHIAZIDE
     Indication: Product used for unknown indication
     Dosage: UNK
     Route: 065
  9. BISOPROLOL [Concomitant]
     Active Substance: BISOPROLOL
     Indication: Product used for unknown indication
     Dosage: UNK
     Route: 065
  10. FELODIPINE [Concomitant]
     Active Substance: FELODIPINE
     Indication: Product used for unknown indication
     Dosage: UNK
     Route: 065
  11. LISINOPRIL [Concomitant]
     Active Substance: LISINOPRIL
     Indication: Product used for unknown indication
     Dosage: UNK
     Route: 065
  12. RIVAROXABAN [Concomitant]
     Active Substance: RIVAROXABAN
     Indication: Product used for unknown indication
     Dosage: UNK
     Route: 065
  13. SIMVASTATIN [Concomitant]
     Active Substance: SIMVASTATIN
     Indication: Product used for unknown indication
     Dosage: UNK
     Route: 065
  14. ZOLADEX [Concomitant]
     Active Substance: GOSERELIN ACETATE
     Indication: Product used for unknown indication
     Dosage: UNK
     Route: 065
  15. ATENOLOL [Concomitant]
     Active Substance: ATENOLOL
     Indication: Product used for unknown indication
     Dosage: 50 MG
     Route: 065
  16. ATENOLOL [Concomitant]
     Active Substance: ATENOLOL
     Dosage: 20 MG
     Route: 065
  17. ATENOLOL [Concomitant]
     Active Substance: ATENOLOL
     Dosage: 10 MG
     Route: 065

REACTIONS (8)
  - Lower respiratory tract infection [Recovered/Resolved]
  - Pulse abnormal [Recovering/Resolving]
  - Dyspepsia [Not Recovered/Not Resolved]
  - Flatulence [Recovering/Resolving]
  - Headache [Recovering/Resolving]
  - Chest pain [Recovering/Resolving]
  - Hypertension [Not Recovered/Not Resolved]
  - Hypokalaemia [Not Recovered/Not Resolved]

NARRATIVE: CASE EVENT DATE: 20201201
